FAERS Safety Report 4405357-3 (Version None)
Quarter: 2004Q3

REPORT INFORMATION
  Report Type: 
  Country: None (occurrence: None)
  Receive Date: 20040716
  Receipt Date: 20040706
  Transmission Date: 20050211
  Serious: Yes (Other)
  Sender: FDA-Public Use
  Company Number: 2004045648

PATIENT
  Age: 62 Year
  Sex: Male

DRUGS (1)
  1. DIFLUCAN [Suspect]
     Indication: SYSTEMIC CANDIDA
     Dosage: 400 MG INTRAVENOUS
     Route: 042
     Dates: start: 20040626, end: 20040701

REACTIONS (1)
  - INTERSTITIAL LUNG DISEASE [None]
